FAERS Safety Report 4539323-4 (Version None)
Quarter: 2004Q4

REPORT INFORMATION
  Report Type: 
  Country: None (occurrence: None)
  Receive Date: 20041227
  Receipt Date: 20041227
  Transmission Date: 20050328
  Serious: Yes (Other)
  Sender: FDA-Public Use
  Company Number: None

PATIENT
  Age: 20 Year
  Sex: Female
  Weight: 52.1637 kg

DRUGS (4)
  1. ALEVE [Suspect]
     Indication: ARTHRALGIA
     Dosage: 2 TO 3 TABS  3 TO 4 HOURS ORAL
     Route: 048
     Dates: start: 19990601, end: 20041224
  2. ALEVE [Suspect]
     Indication: DYSMENORRHOEA
     Dosage: 2 TO 3 TABS  3 TO 4 HOURS ORAL
     Route: 048
     Dates: start: 19990601, end: 20041224
  3. NAPROXEN SODIUM [Suspect]
     Indication: ARTHRALGIA
     Dosage: 2 TO 3 TABS  3 TO 4 HOURS  ORAL
     Route: 048
     Dates: start: 19990601, end: 20041224
  4. NAPROXEN SODIUM [Suspect]
     Indication: DYSMENORRHOEA
     Dosage: 2 TO 3 TABS  3 TO 4 HOURS  ORAL
     Route: 048
     Dates: start: 19990601, end: 20041224

REACTIONS (2)
  - ARTHRALGIA [None]
  - SUPRAVENTRICULAR TACHYCARDIA [None]
